FAERS Safety Report 9676042 (Version 3)
Quarter: 2013Q4

REPORT INFORMATION
  Report Type: Report from Study
  Country: BR (occurrence: BR)
  Receive Date: 20131107
  Receipt Date: 20131227
  Transmission Date: 20140711
  Serious: Yes (Other)
  Sender: FDA-Public Use
  Company Number: PHHY2013BR106109

PATIENT
  Sex: Male

DRUGS (11)
  1. GALVUS MET [Suspect]
     Indication: DIABETES MELLITUS
     Dosage: 1 DF (850MG METF /50MG VILD), BID (1IN THE MORNNING AND 1AT NIGHT)
  2. GALVUS MET [Suspect]
     Dosage: 2 DF (850MG METF/ 50MG VILD), DAILY
     Route: 048
  3. DIOVAN [Suspect]
     Dosage: 80 MG, UNK
  4. METFORMIN [Suspect]
     Dosage: 850 MG, UNK
  5. CARVEDILOL [Suspect]
     Dosage: UNK UKN, UNK
  6. ALLOPURINOL [Suspect]
     Dosage: UNK UKN, UNK
  7. FUROSEMIDE [Suspect]
     Dosage: 40 MG, UNK
  8. JANUMET [Suspect]
     Dosage: UNK UKN, UNK
  9. SYNTHROID [Suspect]
     Dosage: UNK UKN, UNK
  10. VASOPRIL [Suspect]
     Dosage: 20 MG, UNK
  11. HUMALOG MIX [Suspect]
     Indication: BLOOD GLUCOSE INCREASED
     Dosage: UNK UKN, PRN

REACTIONS (4)
  - Hypertension [Recovering/Resolving]
  - Influenza [Not Recovered/Not Resolved]
  - Nasopharyngitis [Recovering/Resolving]
  - Blood glucose increased [Unknown]
